FAERS Safety Report 19641659 (Version 1)
Quarter: 2021Q3

REPORT INFORMATION
  Report Type: Other
  Country: US (occurrence: US)
  Receive Date: 20210731
  Receipt Date: 20210731
  Transmission Date: 20211014
  Serious: No
  Sender: FDA-Public Use
  Company Number: US-ROCHE-2876450

PATIENT
  Age: 36 Year
  Sex: Female
  Weight: 81.72 kg

DRUGS (7)
  1. VITAMIN D [ERGOCALCIFEROL] [Concomitant]
     Active Substance: ERGOCALCIFEROL
     Route: 048
  2. XANAX [Concomitant]
     Active Substance: ALPRAZOLAM
     Route: 048
  3. OCREVUS [Suspect]
     Active Substance: OCRELIZUMAB
     Indication: RELAPSING-REMITTING MULTIPLE SCLEROSIS
     Dosage: ONGOING YES?DATE OF TREATMENT: 18/OCT/2019, 20/APR/2020, 26/OCT/2020, 26/APR/2021
     Route: 042
     Dates: start: 20190403
  4. ZOLOFT [Concomitant]
     Active Substance: SERTRALINE HYDROCHLORIDE
     Route: 048
  5. QVAR [Concomitant]
     Active Substance: BECLOMETHASONE DIPROPIONATE
  6. COPPER [Concomitant]
     Active Substance: COPPER
  7. PROVENTIL HFA [Concomitant]
     Active Substance: ALBUTEROL SULFATE

REACTIONS (1)
  - Coronavirus test positive [Not Recovered/Not Resolved]

NARRATIVE: CASE EVENT DATE: 20210720
